FAERS Safety Report 10050120 (Version 4)
Quarter: 2014Q3

REPORT INFORMATION
  Report Type: Spontaneous
  Country: IT (occurrence: IT)
  Receive Date: 20140401
  Receipt Date: 20140911
  Transmission Date: 20150326
  Serious: Yes (Other)
  Sender: FDA-Public Use
  Company Number: IT-ELI_LILLY_AND_COMPANY-IT201403008260

PATIENT
  Age: 13 Year
  Sex: Female

DRUGS (3)
  1. STRATTERA [Suspect]
     Active Substance: ATOMOXETINE HYDROCHLORIDE
     Indication: ATTENTION DEFICIT/HYPERACTIVITY DISORDER
     Dosage: 25 MG, QD
     Route: 048
     Dates: start: 201101, end: 20110228
  2. HALOPERIDOL. [Concomitant]
     Active Substance: HALOPERIDOL
     Indication: TOURETTE^S DISORDER
     Dosage: 0.9 MG, UNKNOWN
     Route: 048
     Dates: start: 200810
  3. STRATTERA [Suspect]
     Active Substance: ATOMOXETINE HYDROCHLORIDE
     Dosage: 40 MG, QD
     Route: 048
     Dates: start: 20110301, end: 20110430

REACTIONS (8)
  - Feeling guilty [Unknown]
  - Obsessive thoughts [Unknown]
  - Indifference [Unknown]
  - Somnolence [Unknown]
  - Weight decreased [Unknown]
  - Anxiety [Unknown]
  - Asthenia [Unknown]
  - Suicide attempt [Recovered/Resolved]

NARRATIVE: CASE EVENT DATE: 20110430
